FAERS Safety Report 8644436 (Version 4)
Quarter: 2012Q4

REPORT INFORMATION
  Report Type: 
  Country: JP (occurrence: JP)
  Receive Date: 20120629
  Receipt Date: 20120925
  Transmission Date: 20130627
  Serious: Yes (Death, Hospitalization, Other)
  Sender: FDA-Public Use
  Company Number: JP-B.I. PHARMACEUTICALS,INC./RIDGEFIELD-2012-BP-14400NB

PATIENT
  Age: 88 Year
  Sex: Female
  Weight: 42 kg

DRUGS (12)
  1. PRADAXA [Suspect]
     Indication: ATRIAL FIBRILLATION
     Dosage: 110 mg
     Route: 048
     Dates: start: 20120121, end: 20120618
  2. PRADAXA [Suspect]
     Dosage: 32.1429 mg
     Route: 048
     Dates: end: 20120627
  3. ARGAMATE [Concomitant]
     Dosage: 25 g
     Route: 048
     Dates: start: 20120620, end: 20120627
  4. ENALAPRIL [Concomitant]
     Dosage: 2.5 mg
     Route: 048
     Dates: start: 20120620, end: 20120627
  5. LASIX [Concomitant]
     Dosage: 20 mg
     Route: 048
     Dates: start: 20120620, end: 20120627
  6. ALDACTONE A [Concomitant]
     Route: 065
  7. ARTIST [Concomitant]
     Dosage: 5 mg
     Route: 048
     Dates: start: 20120620, end: 20120627
  8. MAGLAX [Concomitant]
     Dosage: 2000 mg
     Route: 048
     Dates: start: 20120619, end: 20120627
  9. CISDYNE [Concomitant]
     Dosage: 1500 mg
     Route: 048
     Dates: start: 20120619, end: 20120627
  10. MERISLON [Concomitant]
     Dosage: 18 mcg
     Route: 048
     Dates: start: 20120619, end: 20120627
  11. NAUZELIN [Concomitant]
     Dosage: 30 mg
     Route: 048
     Dates: start: 20120619, end: 20120627
  12. SAMSCA [Concomitant]
     Route: 048
     Dates: start: 20120622, end: 20120627

REACTIONS (5)
  - Cardiac failure [Fatal]
  - Sepsis [Fatal]
  - Shock haemorrhagic [Not Recovered/Not Resolved]
  - Renal failure [Unknown]
  - Gastrointestinal haemorrhage [Not Recovered/Not Resolved]
